FAERS Safety Report 15365248 (Version 1)
Quarter: 2018Q3

REPORT INFORMATION
  Report Type: Spontaneous
  Country: US (occurrence: US)
  Receive Date: 20180910
  Receipt Date: 20180910
  Transmission Date: 20181010
  Serious: Yes (Other)
  Sender: FDA-Public Use
  Company Number: US-ACCORD-071428

PATIENT
  Age: 46 Year
  Sex: Male

DRUGS (1)
  1. HYDROCHLOROTHIAZIDE ACCORD [Suspect]
     Active Substance: HYDROCHLOROTHIAZIDE
     Indication: PRODUCT USED FOR UNKNOWN INDICATION
     Dosage: STRENGTH: 12.5 MG

REACTIONS (3)
  - Palpitations [Unknown]
  - Laboratory test abnormal [Unknown]
  - Asthenia [Unknown]
